FAERS Safety Report 8790320 (Version 1)
Quarter: 2012Q4

REPORT INFORMATION
  Report Type: 
  Country: FR (occurrence: FR)
  Receive Date: 20120917
  Receipt Date: 20120917
  Transmission Date: 20130627
  Serious: Yes (Other)
  Sender: FDA-Public Use
  Company Number: FR-ASTRAZENECA-2012SE70417

PATIENT
  Age: 23569 Day
  Sex: Female

DRUGS (6)
  1. DIPRIVAN [Suspect]
     Dosage: ONCE/SINGLE ADMINISTRATION
     Route: 042
     Dates: start: 20120801, end: 20120801
  2. PLAVIX [Concomitant]
  3. ZOPICLONE [Concomitant]
  4. PHLOROGLUCINOL [Concomitant]
  5. PERFALGAN [Concomitant]
  6. SUFENTA [Concomitant]

REACTIONS (1)
  - Convulsion [Recovered/Resolved]
